FAERS Safety Report 4717351-3 (Version None)
Quarter: 2005Q3

REPORT INFORMATION
  Report Type: 
  Country: None (occurrence: None)
  Receive Date: 20050718
  Receipt Date: 20050705
  Transmission Date: 20060218
  Serious: Yes (Other)
  Sender: FDA-Public Use
  Company Number: 2300

PATIENT
  Age: 44 Year
  Sex: Male
  Weight: 112.9457 kg

DRUGS (5)
  1. PROPYLTHIOURACIL [Suspect]
     Dosage: 50 MG
  2. IMURAN [Concomitant]
  3. PREDNISONE [Concomitant]
  4. COUMADIN [Concomitant]
  5. FLURAZEPAM [Concomitant]

REACTIONS (2)
  - ARRHYTHMIA [None]
  - PHARMACEUTICAL PRODUCT COMPLAINT [None]
